FAERS Safety Report 21529691 (Version 7)
Quarter: 2024Q3

REPORT INFORMATION
  Report Type: Spontaneous
  Country: US (occurrence: US)
  Receive Date: 20221031
  Receipt Date: 20240722
  Transmission Date: 20241016
  Serious: No
  Sender: PFIZER
  Company Number: US-PFIZER INC-PV202200092235

PATIENT
  Age: 58 Year
  Sex: Male
  Weight: 105.23 kg

DRUGS (5)
  1. INLYTA [Suspect]
     Active Substance: AXITINIB
     Indication: Renal cell carcinoma stage IV
     Dosage: 5 MG, 2X/DAY
  2. INLYTA [Suspect]
     Active Substance: AXITINIB
     Dosage: 5 MG, 1X/DAY
  3. INLYTA [Suspect]
     Active Substance: AXITINIB
     Dosage: TOOK THE MEDICATION EVERY OTHER DAY FOR 3 WEEKS
  4. INLYTA [Suspect]
     Active Substance: AXITINIB
     Dosage: 1 MG, ALTERNATE DAY
  5. KEYTRUDA [Concomitant]
     Active Substance: PEMBROLIZUMAB
     Indication: Renal cell carcinoma stage IV
     Dosage: UNK

REACTIONS (10)
  - Chronic obstructive pulmonary disease [Unknown]
  - Diarrhoea [Unknown]
  - Fatigue [Not Recovered/Not Resolved]
  - Abdominal pain [Unknown]
  - Constipation [Unknown]
  - Solar lentigo [Recovered/Resolved]
  - Upper respiratory tract infection [Unknown]
  - Ill-defined disorder [Unknown]
  - Off label use [Unknown]
  - Off label use [Unknown]
